FAERS Safety Report 12790371 (Version 2)
Quarter: 2016Q4

REPORT INFORMATION
  Report Type: Spontaneous
  Country: ES (occurrence: ES)
  Receive Date: 20160928
  Receipt Date: 20161010
  Transmission Date: 20170207
  Serious: Yes (Other)
  Sender: FDA-Public Use
  Company Number: ES-ELI_LILLY_AND_COMPANY-ES201609008144

PATIENT
  Age: 9 Year
  Sex: Male

DRUGS (4)
  1. RUBIFEN                            /00083802/ [Concomitant]
     Indication: PRODUCT USED FOR UNKNOWN INDICATION
     Dosage: 30 MG, QD
     Route: 065
     Dates: start: 201601
  2. RUBIFEN                            /00083802/ [Concomitant]
     Dosage: 20 MG (2X10MG), QD
     Route: 048
     Dates: start: 20160905
  3. STRATTERA [Suspect]
     Active Substance: ATOMOXETINE HYDROCHLORIDE
     Dosage: 2 X18 MG, QD
     Route: 048
     Dates: start: 20160905
  4. STRATTERA [Suspect]
     Active Substance: ATOMOXETINE HYDROCHLORIDE
     Indication: PRODUCT USED FOR UNKNOWN INDICATION
     Dosage: 40 MG, QD
     Route: 048
     Dates: end: 20160904

REACTIONS (5)
  - Abnormal behaviour [Recovered/Resolved]
  - Headache [Recovered/Resolved]
  - Intentional self-injury [Recovered/Resolved]
  - Crying [Recovered/Resolved]
  - Screaming [Recovered/Resolved]

NARRATIVE: CASE EVENT DATE: 20160904
